FAERS Safety Report 4573682-1 (Version None)
Quarter: 2005Q1

REPORT INFORMATION
  Report Type: 
  Country: None (occurrence: None)
  Receive Date: 20050203
  Receipt Date: 20050124
  Transmission Date: 20050727
  Serious: Yes (Hospitalization)
  Sender: FDA-Public Use
  Company Number: 200510341BCC

PATIENT
  Age: 53 Year
  Sex: Female
  Weight: 72.5755 kg

DRUGS (6)
  1. ALEVE (CAPLET) [Suspect]
     Indication: PAIN
     Dosage: PRN, ORAL
     Route: 048
     Dates: end: 20040801
  2. NEURONTIN [Concomitant]
  3. ATENOLOL [Concomitant]
  4. NEDAPHINOPIN [Concomitant]
  5. ASPIRIN [Concomitant]
  6. COZAAR [Concomitant]

REACTIONS (1)
  - CEREBROVASCULAR ACCIDENT [None]
